FAERS Safety Report 24612823 (Version 2)
Quarter: 2025Q2

REPORT INFORMATION
  Report Type: Spontaneous
  Country: CA (occurrence: CA)
  Receive Date: 20241113
  Receipt Date: 20250624
  Transmission Date: 20250716
  Serious: Yes (Hospitalization, Other)
  Sender: Haleon PLC
  Company Number: CA-002147023-NVSC2023CA023717

PATIENT
  Age: 75 Year
  Sex: Female
  Weight: 70 kg

DRUGS (105)
  1. DICLOFENAC SODIUM [Suspect]
     Active Substance: DICLOFENAC SODIUM
     Indication: Arthralgia
  2. ATORVASTATIN [Suspect]
     Active Substance: ATORVASTATIN
     Indication: Dyslipidaemia
  3. AMOXICILLIN [Suspect]
     Active Substance: AMOXICILLIN
     Indication: Sinusitis
  4. AMOXICILLIN [Suspect]
     Active Substance: AMOXICILLIN
  5. NICOTINAMIDE [Suspect]
     Active Substance: NIACINAMIDE
     Indication: Product used for unknown indication
  6. PSEUDOEPHEDRINE [Suspect]
     Active Substance: PSEUDOEPHEDRINE
     Indication: Product used for unknown indication
  7. RIBOFLAVIN [Suspect]
     Active Substance: RIBOFLAVIN
     Indication: Product used for unknown indication
  8. VITAMIN A [Suspect]
     Active Substance: VITAMIN A
     Indication: Product used for unknown indication
  9. ERGOCALCIFEROL [Suspect]
     Active Substance: ERGOCALCIFEROL
     Indication: Product used for unknown indication
  10. PSEUDOEPHEDRINE HYDROCHLORIDE [Suspect]
     Active Substance: PSEUDOEPHEDRINE HYDROCHLORIDE
     Indication: Product used for unknown indication
  11. PSEUDOEPHEDRINE HYDROCHLORIDE [Suspect]
     Active Substance: PSEUDOEPHEDRINE HYDROCHLORIDE
  12. PSEUDOEPHEDRINE HYDROCHLORIDE [Suspect]
     Active Substance: PSEUDOEPHEDRINE HYDROCHLORIDE
  13. VITAMIN C [Suspect]
     Active Substance: ASCORBIC ACID
     Indication: Product used for unknown indication
  14. VITAMIN D3 [Suspect]
     Active Substance: CHOLECALCIFEROL
     Indication: Product used for unknown indication
  15. VITAMIN D3 [Suspect]
     Active Substance: CHOLECALCIFEROL
  16. VITAMIN D3 [Suspect]
     Active Substance: CHOLECALCIFEROL
  17. VITAMIN D3 [Suspect]
     Active Substance: CHOLECALCIFEROL
  18. ACETAMINOPHEN\PSEUDOEPHEDRINE [Concomitant]
     Active Substance: ACETAMINOPHEN\PSEUDOEPHEDRINE
     Indication: Product used for unknown indication
  19. BRINZOLAMIDE\TIMOLOL [Suspect]
     Active Substance: BRINZOLAMIDE\TIMOLOL
     Indication: Glaucoma
  20. BRINZOLAMIDE\TIMOLOL [Suspect]
     Active Substance: BRINZOLAMIDE\TIMOLOL
  21. ESTRADIOL [Suspect]
     Active Substance: ESTRADIOL
     Indication: Product used for unknown indication
  22. ESTRADIOL [Suspect]
     Active Substance: ESTRADIOL
     Route: 062
  23. AMOXICILLIN [Concomitant]
     Active Substance: AMOXICILLIN
     Indication: Product used for unknown indication
  24. ATORVASTATIN CALCIUM [Suspect]
     Active Substance: ATORVASTATIN CALCIUM
     Indication: Dyslipidaemia
  25. ATORVASTATIN CALCIUM [Suspect]
     Active Substance: ATORVASTATIN CALCIUM
     Indication: Product used for unknown indication
  26. IPRATROPIUM [Suspect]
     Active Substance: IPRATROPIUM
     Indication: Rhinitis
     Route: 045
  27. IPRATROPIUM [Suspect]
     Active Substance: IPRATROPIUM
  28. IPRATROPIUM [Suspect]
     Active Substance: IPRATROPIUM
     Route: 045
  29. IPRATROPIUM [Suspect]
     Active Substance: IPRATROPIUM
     Route: 045
  30. IPRATROPIUM [Suspect]
     Active Substance: IPRATROPIUM
  31. IPRATROPIUM [Suspect]
     Active Substance: IPRATROPIUM
     Route: 045
  32. IPRATROPIUM [Suspect]
     Active Substance: IPRATROPIUM
     Route: 045
  33. IPRATROPIUM [Suspect]
     Active Substance: IPRATROPIUM
     Route: 045
  34. ZOPICLONE [Suspect]
     Active Substance: ZOPICLONE
     Indication: Insomnia
  35. ZOPICLONE [Suspect]
     Active Substance: ZOPICLONE
  36. ZOPICLONE [Suspect]
     Active Substance: ZOPICLONE
  37. PYRIDOXINE HYDROCHLORIDE [Suspect]
     Active Substance: PYRIDOXINE HYDROCHLORIDE
     Indication: Product used for unknown indication
  38. PYRIDOXINE HYDROCHLORIDE [Suspect]
     Active Substance: PYRIDOXINE HYDROCHLORIDE
  39. PYRIDOXINE HYDROCHLORIDE [Suspect]
     Active Substance: PYRIDOXINE HYDROCHLORIDE
  40. PYRIDOXINE HYDROCHLORIDE [Suspect]
     Active Substance: PYRIDOXINE HYDROCHLORIDE
  41. PYRIDOXINE HYDROCHLORIDE [Suspect]
     Active Substance: PYRIDOXINE HYDROCHLORIDE
  42. PYRIDOXINE HYDROCHLORIDE [Suspect]
     Active Substance: PYRIDOXINE HYDROCHLORIDE
  43. ESTRADIOL [Suspect]
     Active Substance: ESTRADIOL
     Indication: Menopausal symptoms
  44. ESTRADIOL [Suspect]
     Active Substance: ESTRADIOL
  45. ESTRADIOL [Suspect]
     Active Substance: ESTRADIOL
  46. ATORVASTATIN CALCIUM [Concomitant]
     Active Substance: ATORVASTATIN CALCIUM
     Indication: Product used for unknown indication
  47. BRINZOLAMIDE [Suspect]
     Active Substance: BRINZOLAMIDE
     Indication: Glaucoma
  48. ADVIL [Suspect]
     Active Substance: IBUPROFEN
     Indication: Arthralgia
  49. ADVIL [Suspect]
     Active Substance: IBUPROFEN
  50. ADVIL [Suspect]
     Active Substance: IBUPROFEN
  51. CHOLECALCIFEROL [Concomitant]
     Active Substance: CHOLECALCIFEROL
     Indication: Product used for unknown indication
  52. NAPROXEN SODIUM [Concomitant]
     Active Substance: NAPROXEN SODIUM
     Indication: Product used for unknown indication
  53. AZOPT [Suspect]
     Active Substance: BRINZOLAMIDE
     Indication: Glaucoma
  54. CLONAZEPAM [Suspect]
     Active Substance: CLONAZEPAM
     Indication: Product used for unknown indication
  55. CLONAZEPAM [Suspect]
     Active Substance: CLONAZEPAM
  56. CLONAZEPAM [Suspect]
     Active Substance: CLONAZEPAM
  57. PREGABALIN [Suspect]
     Active Substance: PREGABALIN
     Indication: Arthralgia
  58. PREGABALIN [Suspect]
     Active Substance: PREGABALIN
  59. LATANOPROST [Suspect]
     Active Substance: LATANOPROST
     Indication: Glaucoma
  60. LATANOPROST [Suspect]
     Active Substance: LATANOPROST
  61. LATANOPROST [Suspect]
     Active Substance: LATANOPROST
  62. LATANOPROST [Suspect]
     Active Substance: LATANOPROST
  63. LATANOPROST [Suspect]
     Active Substance: LATANOPROST
  64. ACETAMINOPHEN [Concomitant]
     Active Substance: ACETAMINOPHEN
     Indication: Product used for unknown indication
  65. DICLOFENAC [Suspect]
     Active Substance: DICLOFENAC
     Indication: Product used for unknown indication
  66. DICLOFENAC [Suspect]
     Active Substance: DICLOFENAC
     Indication: Arthralgia
  67. DICLOFENAC [Concomitant]
     Active Substance: DICLOFENAC
     Indication: Product used for unknown indication
  68. TUMS ULTRA [Suspect]
     Active Substance: CALCIUM CARBONATE
     Indication: Product used for unknown indication
  69. TUMS ULTRA [Suspect]
     Active Substance: CALCIUM CARBONATE
  70. TUMS ULTRA [Suspect]
     Active Substance: CALCIUM CARBONATE
  71. TELMISARTAN [Suspect]
     Active Substance: TELMISARTAN
     Indication: Hypertension
  72. TELMISARTAN [Suspect]
     Active Substance: TELMISARTAN
  73. TELMISARTAN [Suspect]
     Active Substance: TELMISARTAN
  74. TELMISARTAN [Suspect]
     Active Substance: TELMISARTAN
  75. VITAMIN B6 [Suspect]
     Active Substance: PYRIDOXINE HYDROCHLORIDE
     Indication: Product used for unknown indication
  76. PYRIDOXINE [Concomitant]
     Active Substance: PYRIDOXINE
     Indication: Product used for unknown indication
  77. PYRIDOXINE HYDROCHLORIDE [Concomitant]
     Active Substance: PYRIDOXINE HYDROCHLORIDE
     Indication: Product used for unknown indication
  78. GABAPENTIN [Suspect]
     Active Substance: GABAPENTIN
     Indication: Arthralgia
  79. GABAPENTIN [Suspect]
     Active Substance: GABAPENTIN
  80. NAPROXEN [Suspect]
     Active Substance: NAPROXEN
     Indication: Arthralgia
  81. ACETAMINOPHEN [Suspect]
     Active Substance: ACETAMINOPHEN
     Indication: Product used for unknown indication
  82. ACETAMINOPHEN [Suspect]
     Active Substance: ACETAMINOPHEN
  83. ACETAMINOPHEN [Suspect]
     Active Substance: ACETAMINOPHEN
  84. ACETAMINOPHEN [Suspect]
     Active Substance: ACETAMINOPHEN
  85. ACETAMINOPHEN [Suspect]
     Active Substance: ACETAMINOPHEN
  86. ACETAMINOPHEN [Suspect]
     Active Substance: ACETAMINOPHEN
  87. ACETAMINOPHEN [Suspect]
     Active Substance: ACETAMINOPHEN
  88. ACETAMINOPHEN [Suspect]
     Active Substance: ACETAMINOPHEN
  89. AMOXICILLIN TRIHYDRATE [Suspect]
     Active Substance: AMOXICILLIN
     Indication: Sinusitis
  90. BRINZOLAMIDE\TIMOLOL MALEATE [Suspect]
     Active Substance: BRINZOLAMIDE\TIMOLOL MALEATE
     Indication: Glaucoma
  91. BRINZOLAMIDE\TIMOLOL MALEATE [Suspect]
     Active Substance: BRINZOLAMIDE\TIMOLOL MALEATE
  92. BRINZOLAMIDE\TIMOLOL MALEATE [Suspect]
     Active Substance: BRINZOLAMIDE\TIMOLOL MALEATE
  93. BRINZOLAMIDE\TIMOLOL MALEATE [Suspect]
     Active Substance: BRINZOLAMIDE\TIMOLOL MALEATE
  94. BRINZOLAMIDE\TIMOLOL MALEATE [Suspect]
     Active Substance: BRINZOLAMIDE\TIMOLOL MALEATE
  95. CHOLECALCIFEROL [Suspect]
     Active Substance: CHOLECALCIFEROL
     Indication: Product used for unknown indication
  96. CHOLECALCIFEROL [Suspect]
     Active Substance: CHOLECALCIFEROL
  97. DEXPANTHENOL [Suspect]
     Active Substance: DEXPANTHENOL
     Indication: Product used for unknown indication
  98. IPRATROPIUM BROMIDE [Concomitant]
     Active Substance: IPRATROPIUM BROMIDE
     Indication: Rhinitis
  99. THIAMINE HYDROCHLORIDE [Suspect]
     Active Substance: THIAMINE HYDROCHLORIDE
     Indication: Product used for unknown indication
  100. ESTRADIOL [Suspect]
     Active Substance: ESTRADIOL
     Indication: Arthralgia
  101. ESTRADIOL [Suspect]
     Active Substance: ESTRADIOL
     Indication: Menopausal symptoms
  102. ESTRADIOL [Suspect]
     Active Substance: ESTRADIOL
  103. ESTRADIOL [Suspect]
     Active Substance: ESTRADIOL
  104. ESTRADIOL [Suspect]
     Active Substance: ESTRADIOL
  105. FOLIC ACID [Suspect]
     Active Substance: FOLIC ACID
     Indication: Product used for unknown indication

REACTIONS (8)
  - Epidermal necrosis [Recovered/Resolved]
  - Rash papular [Recovered/Resolved]
  - Rash erythematous [Recovered/Resolved]
  - Haemoglobin decreased [Recovered/Resolved]
  - Product use in unapproved indication [Recovered/Resolved]
  - Off label use [Recovered/Resolved]
  - Toxic epidermal necrolysis [Recovered/Resolved]
  - Nikolsky^s sign positive [Recovered/Resolved]
